FAERS Safety Report 5066280-7 (Version None)
Quarter: 2006Q3

REPORT INFORMATION
  Report Type: 
  Country: None (occurrence: None)
  Receive Date: 20060706
  Receipt Date: 20050713
  Transmission Date: 20061208
  Serious: Yes (Death)
  Sender: FDA-Public Use
  Company Number: 1867

PATIENT
  Age: 50 Year
  Sex: Male

DRUGS (9)
  1. AVINZA [Suspect]
     Indication: PHARYNGOLARYNGEAL PAIN
     Dosage: 60 MG QD PO
     Route: 048
     Dates: start: 20050523, end: 20050524
  2. AVINZA [Suspect]
     Indication: THROAT CANCER
     Dosage: 60 MG QD PO
     Route: 048
     Dates: start: 20050523, end: 20050524
  3. ACETAMINOPHEN AND HYDROCODONE BITARTRATE [Concomitant]
  4. DIGOXIN [Concomitant]
  5. FERROUS GLUCONATE [Concomitant]
  6. FOLIC ACID [Concomitant]
  7. MOXIFLOXACIN HYDROCHLORIDE [Concomitant]
  8. RISPERIDONE [Concomitant]
  9. VERAPAMIL HYDROCHLORIDE [Concomitant]

REACTIONS (1)
  - DYSPNOEA [None]
